FAERS Safety Report 5664862-2 (Version None)
Quarter: 2008Q1

REPORT INFORMATION
  Report Type: 
  Country: None (occurrence: None)
  Receive Date: 20080314
  Receipt Date: 20080310
  Transmission Date: 20080703
  Serious: Yes (Other)
  Sender: FDA-Public Use
  Company Number: ES-GENENTECH-252089

PATIENT
  Age: 40 Year
  Sex: Female

DRUGS (1)
  1. XOLAIR [Suspect]
     Indication: ASTHMA
     Dosage: 1 VIAL, 1/MONTH
     Dates: start: 20061217

REACTIONS (2)
  - LYMPHOCYTOSIS [None]
  - RESPIRATORY TRACT INFECTION [None]
